FAERS Safety Report 25199870 (Version 2)
Quarter: 2025Q2

REPORT INFORMATION
  Report Type: Spontaneous
  Country: IT (occurrence: IT)
  Receive Date: 20250415
  Receipt Date: 20250422
  Transmission Date: 20250717
  Serious: No
  Sender: UCB
  Company Number: IT-UCBSA-2025021832

PATIENT
  Sex: Female

DRUGS (1)
  1. NEUPRO [Suspect]
     Active Substance: ROTIGOTINE
     Indication: Product used for unknown indication
     Dosage: 6 MILLIGRAM, UNK
     Route: 065

REACTIONS (1)
  - Product adhesion issue [Unknown]
